FAERS Safety Report 9115810 (Version 1)
Quarter: 2013Q1

REPORT INFORMATION
  Report Type: Report from Study
  Country: AR (occurrence: AR)
  Receive Date: 20130224
  Receipt Date: 20130224
  Transmission Date: 20140127
  Serious: Yes (Death, Hospitalization)
  Sender: FDA-Public Use
  Company Number: AR-BRISTOL-MYERS SQUIBB COMPANY-16563439

PATIENT
  Age: 60 Year
  Sex: Male

DRUGS (4)
  1. IPILIMUMAB [Suspect]
     Indication: PROSTATE CANCER
     Dosage: NO OF COURSE:5
     Route: 042
     Dates: start: 20111012, end: 20120404
  2. RANITIDINE [Concomitant]
  3. METOCLOPRAMIDE [Concomitant]
  4. OXYCODONE [Concomitant]

REACTIONS (3)
  - Death [Fatal]
  - Vomiting [Recovered/Resolved]
  - Dehydration [Not Recovered/Not Resolved]
